FAERS Safety Report 23077976 (Version 1)
Quarter: 2023Q4

REPORT INFORMATION
  Report Type: Spontaneous
  Country: US (occurrence: US)
  Receive Date: 20231018
  Receipt Date: 20231018
  Transmission Date: 20240110
  Serious: Yes (Death, Life-Threatening, Hospitalization)
  Sender: FDA-Public Use
  Company Number: US-drreddys-LIT/USA/23/0179788

PATIENT
  Age: 37 Year
  Sex: Female

DRUGS (1)
  1. COLCHICINE [Suspect]
     Active Substance: COLCHICINE
     Indication: Product used for unknown indication
     Dosage: APPROXIMATELY 40 TABLETS (24MG; 0.3 MG/KG)

REACTIONS (7)
  - Toxicity to various agents [Fatal]
  - Acute respiratory distress syndrome [Unknown]
  - Lactic acidosis [Unknown]
  - Shock [Unknown]
  - Multiple organ dysfunction syndrome [Unknown]
  - Acute kidney injury [Unknown]
  - Intentional overdose [Unknown]
